FAERS Safety Report 10137120 (Version 2)
Quarter: 2015Q2

REPORT INFORMATION
  Report Type: Report from Study
  Country: US (occurrence: US)
  Receive Date: 20140429
  Receipt Date: 20150501
  Transmission Date: 20150821
  Serious: No
  Sender: FDA-Public Use
  Company Number: US-ABBVIE-14P-163-1220890-00

PATIENT
  Age: 43 Year
  Sex: Female
  Weight: 45.4 kg

DRUGS (1)
  1. ANDROGEL [Suspect]
     Active Substance: TESTOSTERONE
     Indication: ACCIDENTAL EXPOSURE TO PRODUCT
     Dates: start: 20140401, end: 20140401

REACTIONS (3)
  - Emotional disorder [Recovered/Resolved]
  - Depression [Recovered/Resolved]
  - Accidental exposure to product [Recovered/Resolved]

NARRATIVE: CASE EVENT DATE: 20140401
